FAERS Safety Report 6021993-5 (Version None)
Quarter: 2008Q4

REPORT INFORMATION
  Report Type: 
  Country: None (occurrence: None)
  Receive Date: 20081229
  Receipt Date: 20081217
  Transmission Date: 20090506
  Serious: Yes (Other)
  Sender: FDA-Public Use
  Company Number: BE-ASTRAZENECA-2008AC03213

PATIENT

DRUGS (3)
  1. CRESTOR [Suspect]
     Route: 048
  2. OMEPRAZOLE [Concomitant]
  3. BELSAR [Concomitant]

REACTIONS (4)
  - BLOOD AMYLASE INCREASED [None]
  - BLOOD URIC ACID INCREASED [None]
  - GAMMA-GLUTAMYLTRANSFERASE INCREASED [None]
  - LIPASE INCREASED [None]
